FAERS Safety Report 4692241-3 (Version None)
Quarter: 2005Q2

REPORT INFORMATION
  Report Type: 
  Country: None (occurrence: None)
  Receive Date: 20050614
  Receipt Date: 20050531
  Transmission Date: 20051028
  Serious: Yes (Hospitalization)
  Sender: FDA-Public Use
  Company Number: JP-2005-006656

PATIENT
  Age: 14 Year
  Sex: Female
  Weight: 41 kg

DRUGS (5)
  1. BETAFERON (INTERFERON BETA-1B) INJECTION, 250UG [Suspect]
     Indication: MULTIPLE SCLEROSIS
     Dosage: 6 MIU, EVERY 2 D, SUBCUTANEOUS
     Route: 058
     Dates: start: 20040113, end: 20050426
  2. METHYCOBAL (MECOBALAMIN) [Concomitant]
  3. PREDONINE [Concomitant]
  4. CALONAL [Concomitant]
  5. FERROMIA (FERROUS CITRATE) [Concomitant]

REACTIONS (3)
  - MULTIPLE SCLEROSIS RELAPSE [None]
  - NEPHRITIS [None]
  - PHARYNGOLARYNGEAL PAIN [None]
